FAERS Safety Report 5136416-8 (Version None)
Quarter: 2006Q4

REPORT INFORMATION
  Report Type: 
  Country: None (occurrence: None)
  Receive Date: 20061027
  Receipt Date: 20060914
  Transmission Date: 20070319
  Serious: Yes (Other)
  Sender: FDA-Public Use
  Company Number: PHNU2006DE03142

PATIENT
  Age: 41 Year
  Sex: Female

DRUGS (1)
  1. MYFORTIC [Suspect]
     Indication: RHEUMATOID ARTHRITIS
     Dosage: 720 MG, BID
     Dates: start: 20050701, end: 20050901

REACTIONS (1)
  - MYOCARDIAL INFARCTION [None]
